FAERS Safety Report 15458247 (Version 2)
Quarter: 2019Q4

REPORT INFORMATION
  Report Type: Report from Study
  Country: US (occurrence: US)
  Receive Date: 20181003
  Receipt Date: 20191213
  Transmission Date: 20200122
  Serious: Yes (Other)
  Sender: FDA-Public Use
  Company Number: US-ROCHE-2190939

PATIENT
  Age: 28 Year
  Sex: Female

DRUGS (2)
  1. OCREVUS [Suspect]
     Active Substance: OCRELIZUMAB
     Indication: MULTIPLE SCLEROSIS
  2. OCREVUS [Suspect]
     Active Substance: OCRELIZUMAB
     Indication: RELAPSING MULTIPLE SCLEROSIS
     Dosage: ONGOING:YES, DAY 1 AND DAY 15
     Route: 042
     Dates: start: 20180306

REACTIONS (5)
  - Hypersensitivity [Not Recovered/Not Resolved]
  - Malaise [Unknown]
  - Memory impairment [Not Recovered/Not Resolved]
  - Sinusitis [Not Recovered/Not Resolved]
  - Respiratory tract infection [Unknown]

NARRATIVE: CASE EVENT DATE: 201808
